FAERS Safety Report 5915607-X (Version None)
Quarter: 2008Q4

REPORT INFORMATION
  Report Type: 
  Country: None (occurrence: None)
  Receive Date: 20081010
  Receipt Date: 20081003
  Transmission Date: 20090506
  Serious: Yes (Hospitalization)
  Sender: FDA-Public Use
  Company Number: SE-ASTRAZENECA-2008SE04629

PATIENT
  Age: 60 Year
  Sex: Male

DRUGS (3)
  1. SEROQUEL [Suspect]
     Indication: DEPRESSION
     Route: 048
     Dates: start: 20070101
  2. ZOLOFT [Concomitant]
     Indication: DEPRESSION
  3. SINEMET [Concomitant]
     Indication: PARKINSON'S DISEASE

REACTIONS (3)
  - BLOOD CREATINE PHOSPHOKINASE INCREASED [None]
  - MYOGLOBIN BLOOD INCREASED [None]
  - NEUROLEPTIC MALIGNANT SYNDROME [None]
